FAERS Safety Report 10878433 (Version 1)
Quarter: 2015Q1

REPORT INFORMATION
  Report Type: Spontaneous
  Country: US (occurrence: US)
  Receive Date: 20150302
  Receipt Date: 20150302
  Transmission Date: 20150721
  Serious: No
  Sender: FDA-Public Use
  Company Number: US-ABBVIE-14P-163-1266434-00

PATIENT
  Sex: Male
  Weight: 113.5 kg

DRUGS (2)
  1. ANDROGEL [Suspect]
     Active Substance: TESTOSTERONE
     Indication: PRODUCT USED FOR UNKNOWN INDICATION
     Dosage: ONE 2.5 GRAM PACKET DAILY
     Route: 061
     Dates: start: 2012, end: 2012
  2. ANDROGEL [Suspect]
     Active Substance: TESTOSTERONE
     Dosage: ONE 2.5 GRAM PACKET  EVERY OTHER DAY
     Route: 061
     Dates: start: 2012

REACTIONS (1)
  - Blood testosterone increased [Recovered/Resolved]
